FAERS Safety Report 6030222-8 (Version None)
Quarter: 2009Q1

REPORT INFORMATION
  Report Type: 
  Country: None (occurrence: None)
  Receive Date: 20090105
  Receipt Date: 20090105
  Transmission Date: 20090719
  Serious: Yes (Hospitalization, Other)
  Sender: FDA-Public Use
  Company Number: None

PATIENT
  Age: 30 Year
  Sex: Female
  Weight: 50.8029 kg

DRUGS (1)
  1. CHANTIX [Suspect]
     Indication: SMOKING CESSATION THERAPY
     Dosage: 1MG 2X /DAY PO
     Route: 048
     Dates: start: 20081219, end: 20090101

REACTIONS (7)
  - DEPRESSION [None]
  - FEELING ABNORMAL [None]
  - INITIAL INSOMNIA [None]
  - MOOD ALTERED [None]
  - NEGATIVE THOUGHTS [None]
  - STRESS [None]
  - SUICIDAL IDEATION [None]
